FAERS Safety Report 15622386 (Version 1)
Quarter: 2018Q4

REPORT INFORMATION
  Report Type: Spontaneous
  Country: US (occurrence: US)
  Receive Date: 20181115
  Receipt Date: 20181115
  Transmission Date: 20190205
  Serious: No
  Sender: FDA-Public Use
  Company Number: US-PFIZER INC-2018456157

PATIENT
  Age: 63 Year
  Sex: Male
  Weight: 102 kg

DRUGS (4)
  1. PANTOPRAZOLE SODIUM. [Concomitant]
     Active Substance: PANTOPRAZOLE SODIUM
     Indication: GASTROOESOPHAGEAL REFLUX DISEASE
     Dosage: 40 MG, 1X/DAY
  2. FLECTOR [Suspect]
     Active Substance: DICLOFENAC EPOLAMINE
     Indication: SPINAL PAIN
  3. FLECTOR [Suspect]
     Active Substance: DICLOFENAC EPOLAMINE
     Indication: NECK PAIN
     Dosage: UNK UNK, 1X/DAY  (ONCE A DAY AT NIGHT/ PUT IT ONLY FOR 12 HOURS)
     Route: 062
     Dates: start: 20180926
  4. LOVASTATIN. [Concomitant]
     Active Substance: LOVASTATIN
     Dosage: 10 MG, UNK

REACTIONS (3)
  - Gastric disorder [Unknown]
  - Dysphagia [Unknown]
  - Abdominal pain [Unknown]
